FAERS Safety Report 10081502 (Version 3)
Quarter: 2014Q2

REPORT INFORMATION
  Report Type: Spontaneous
  Country: US (occurrence: US)
  Receive Date: 20140416
  Receipt Date: 20140515
  Transmission Date: 20141212
  Serious: No
  Sender: FDA-Public Use
  Company Number: US-009507513-1404USA001890

PATIENT
  Sex: Female
  Weight: 56.69 kg

DRUGS (4)
  1. OXYTROL FOR WOMEN [Suspect]
     Indication: HYPERTONIC BLADDER
     Dosage: UNK UNK, Q4D
     Route: 062
     Dates: end: 20140320
  2. EVISTA [Concomitant]
     Indication: OSTEOPOROSIS PROPHYLAXIS
     Dosage: 60 MG, UNKNOWN
  3. NORVASC [Concomitant]
     Indication: BLOOD PRESSURE
     Dosage: 5 MG, UNKNOWN
  4. SYNTHROID [Concomitant]
     Indication: HYPOTHYROIDISM
     Dosage: 100 MICROGRAM, UNKNOWN

REACTIONS (2)
  - Application site discomfort [Recovered/Resolved]
  - Application site erythema [Not Recovered/Not Resolved]
